FAERS Safety Report 6436736-0 (Version None)
Quarter: 2009Q4

REPORT INFORMATION
  Report Type: 
  Country: None (occurrence: None)
  Receive Date: 20091111
  Receipt Date: 20091030
  Transmission Date: 20100525
  Serious: Yes (Other)
  Sender: FDA-Public Use
  Company Number: JP-GILEAD-E2B_00000492

PATIENT
  Age: 50 Year
  Sex: Male

DRUGS (8)
  1. HEPSERA [Suspect]
     Indication: HEPATIC CIRRHOSIS
     Route: 048
     Dates: start: 20030101, end: 20090501
  2. ZEFIX [Suspect]
     Indication: HEPATIC CIRRHOSIS
     Route: 048
     Dates: start: 20010101, end: 20090501
  3. BONALON [Concomitant]
     Indication: OSTEOPOROSIS
     Route: 048
  4. NORVASC [Concomitant]
     Dosage: 5MG PER DAY
     Route: 048
  5. GLAKAY [Concomitant]
     Indication: OSTEOPOROSIS
     Dosage: 45MG PER DAY
     Route: 048
  6. VOLTAREN [Concomitant]
     Indication: ANALGESIC THERAPY
     Dosage: 50MG PER DAY
     Route: 048
     Dates: end: 20090501
  7. GASTER D [Concomitant]
     Indication: ULCER
     Dosage: 40MG PER DAY
     Route: 048
  8. ENTECAVIR [Concomitant]

REACTIONS (9)
  - AMINOACIDURIA [None]
  - BLOOD URIC ACID [None]
  - BODY HEIGHT DECREASED [None]
  - FANCONI SYNDROME ACQUIRED [None]
  - HYPOPHOSPHATAEMIA [None]
  - METABOLIC ACIDOSIS [None]
  - MULTIPLE FRACTURES [None]
  - OSTEOMALACIA [None]
  - RENAL GLYCOSURIA [None]
